FAERS Safety Report 6642162-1 (Version None)
Quarter: 2010Q1

REPORT INFORMATION
  Report Type: 
  Country: None (occurrence: None)
  Receive Date: 20100319
  Receipt Date: 20100310
  Transmission Date: 20100710
  Serious: Yes (Other)
  Sender: FDA-Public Use
  Company Number: JP-PFIZER INC-2010032655

PATIENT

DRUGS (1)
  1. NORVASC [Suspect]

REACTIONS (1)
  - ALBUMINURIA [None]
